FAERS Safety Report 10201381 (Version 2)
Quarter: 2014Q3

REPORT INFORMATION
  Report Type: Report from Study
  Country: US (occurrence: US)
  Receive Date: 20140528
  Receipt Date: 20140801
  Transmission Date: 20150326
  Serious: Yes (Other)
  Sender: FDA-Public Use
  Company Number: PHEH2014US010726

PATIENT
  Age: 45 Year
  Sex: Male
  Weight: 73 kg

DRUGS (9)
  1. GILENYA [Suspect]
     Active Substance: FINGOLIMOD HYDROCHLORIDE
     Indication: RELAPSING-REMITTING MULTIPLE SCLEROSIS
     Dosage: 0.5 MG, QD
     Route: 048
     Dates: start: 20111216
  2. BACLOFEN. [Concomitant]
     Active Substance: BACLOFEN
     Indication: MUSCLE SPASTICITY
     Dosage: 20 MG, BID
     Route: 048
     Dates: start: 20100413
  3. MAGNESIUM GLYCINATE [Concomitant]
     Active Substance: MAGNESIUM GLYCINATE
     Indication: MUSCULOSKELETAL STIFFNESS
     Dosage: 100 MG, QD
     Route: 048
     Dates: start: 20131218
  4. AMPYRA [Concomitant]
     Active Substance: DALFAMPRIDINE
     Indication: BALANCE DISORDER
     Dosage: 10 MG, BID
     Route: 048
     Dates: start: 20111101
  5. NAMENDA [Concomitant]
     Active Substance: MEMANTINE HYDROCHLORIDE
     Indication: DEPRESSION
     Dosage: 28 MG, QD
     Dates: start: 20081010
  6. VITAMIN D3 [Concomitant]
     Active Substance: CHOLECALCIFEROL
     Indication: VITAMIN D DECREASED
     Dosage: 4000 IU, BID
  7. LEVITRA [Concomitant]
     Active Substance: VARDENAFIL HYDROCHLORIDE TRIHYDRATE
     Indication: ERECTILE DYSFUNCTION
     Dosage: 20 MG, PRN
     Route: 048
     Dates: start: 20130613
  8. VENTOLIN HFA [Concomitant]
     Active Substance: ALBUTEROL SULFATE
     Indication: ASTHMA
     Dosage: 2 DF, UNK
  9. ADVAIR DISKUS [Concomitant]
     Active Substance: FLUTICASONE PROPIONATE\SALMETEROL XINAFOATE
     Indication: ASTHMA
     Dates: start: 20110627

REACTIONS (18)
  - Nuclear magnetic resonance imaging abnormal [Unknown]
  - Muscular weakness [Unknown]
  - Muscle spasticity [Recovering/Resolving]
  - Posture abnormal [Not Recovered/Not Resolved]
  - Gait disturbance [Unknown]
  - Sleep disorder [Unknown]
  - Dysphemia [Unknown]
  - Eye allergy [Unknown]
  - Visual acuity reduced [Unknown]
  - Balance disorder [Unknown]
  - Condition aggravated [Not Recovered/Not Resolved]
  - Hyperreflexia [Unknown]
  - Musculoskeletal stiffness [Recovering/Resolving]
  - Micturition urgency [Unknown]
  - Constipation [Unknown]
  - Demyelination [Unknown]
  - Ataxia [Unknown]
  - Nasal congestion [Unknown]

NARRATIVE: CASE EVENT DATE: 20131226
